FAERS Safety Report 19847181 (Version 1)
Quarter: 2021Q3

REPORT INFORMATION
  Report Type: Report from Study
  Country: None (occurrence: HU)
  Receive Date: 20210917
  Receipt Date: 20210917
  Transmission Date: 20211014
  Serious: Yes (Death)
  Sender: FDA-Public Use
  Company Number: HU-ABBVIE-21K-076-4083553-00

PATIENT
  Sex: Male

DRUGS (5)
  1. DUODOPA [Suspect]
     Active Substance: CARBIDOPA\LEVODOPA
  2. DUODOPA [Suspect]
     Active Substance: CARBIDOPA\LEVODOPA
     Indication: PARKINSON^S DISEASE
     Dosage: MORNING DOSE: 10 ML; CONTINUOUS DOSE: 2.2 ML/HOUR; EVENING DOSE: 1.0 ML
     Route: 050
     Dates: start: 20140116
  3. ASPIRIN PROTECT [Concomitant]
     Active Substance: ASPIRIN
     Indication: PROPHYLAXIS
     Dosage: 1 TABLET AT NOON
     Route: 048
     Dates: start: 20181103
  4. ISOPTIN [Concomitant]
     Active Substance: VERAPAMIL HYDROCHLORIDE
     Indication: PRODUCT USED FOR UNKNOWN INDICATION
     Route: 048
  5. LETROX [Concomitant]
     Active Substance: LEVOTHYROXINE SODIUM
     Indication: THYROID DISORDER
     Dosage: 1 TABLET IN THE MORNING
     Route: 048
     Dates: start: 2020

REACTIONS (2)
  - Arteriosclerosis [Unknown]
  - Parkinson^s disease [Fatal]

NARRATIVE: CASE EVENT DATE: 2018
